FAERS Safety Report 26198197 (Version 1)
Quarter: 2025Q4

REPORT INFORMATION
  Report Type: Spontaneous
  Country: TW (occurrence: TW)
  Receive Date: 20251224
  Receipt Date: 20251224
  Transmission Date: 20260117
  Serious: Yes (Life-Threatening)
  Sender: PFIZER
  Company Number: TW-PFIZER INC-PV202500148733

PATIENT
  Age: 54 Year
  Sex: Female
  Weight: 94.9 kg

DRUGS (18)
  1. ZYVOX [Suspect]
     Active Substance: LINEZOLID
     Indication: Enterococcal infection
     Dosage: 600.0 MG, 2X/DAY(ONCE EVERY 12.0 HOURS)
     Route: 041
     Dates: start: 20251121, end: 20251129
  2. ZYVOX [Suspect]
     Active Substance: LINEZOLID
     Indication: Bacteraemia
  3. GANCICLOVIR [Suspect]
     Active Substance: GANCICLOVIR
     Indication: Cytomegalovirus infection
     Dosage: 150.0 MG, 2X/DAY(ONCE EVERY 0.5 DAY)
     Route: 041
     Dates: start: 20251128, end: 20251130
  4. OLODATEROL HYDROCHLORIDE\TIOTROPIUM BROMIDE MONOHYDRATE [Concomitant]
     Active Substance: OLODATEROL HYDROCHLORIDE\TIOTROPIUM BROMIDE MONOHYDRATE
     Indication: Acute respiratory failure
     Dosage: 4.0 DF(PUFF), 1X/DAY
     Route: 055
     Dates: start: 20251107, end: 20251207
  5. ACTEIN [Concomitant]
     Indication: Productive cough
     Dosage: 1200.0 MG, 2X/DAY(ONCE EVERY 0.5 DAY)
     Route: 048
     Dates: start: 20251114, end: 20251208
  6. AMIORONE [Concomitant]
     Indication: Ventricular tachycardia
     Dosage: 200.0 MG, 1X/DAY
     Route: 048
     Dates: start: 20251116, end: 20251216
  7. SYMPROIC [Concomitant]
     Active Substance: NALDEMEDINE TOSYLATE
     Indication: Constipation
     Dosage: 0.2 MG, 1X/DAY
     Route: 048
     Dates: start: 20251118, end: 20251209
  8. LANSOPRAZOLE [Concomitant]
     Active Substance: LANSOPRAZOLE
     Indication: Prophylaxis
     Dosage: 30.0 MG, 1X/DAY
     Route: 048
     Dates: start: 20251119, end: 20251210
  9. COLISTIN SULFATE [Concomitant]
     Active Substance: COLISTIN SULFATE
     Indication: Pneumonia
     Dosage: 6000000 IU, 3X/DAY(6.0MU, ONCE EVERY 8.0 HOURS)
     Route: 055
     Dates: start: 20251123, end: 20251130
  10. UFO [FOSFOMYCIN SODIUM] [Concomitant]
     Indication: Bacteraemia
     Dosage: 4.0 G, 3X/DAY(ONCE EVERY 8.0 HOURS)
     Route: 041
     Dates: start: 20251124, end: 20251201
  11. SABS [Concomitant]
     Indication: Bacteraemia
     Dosage: 500.0 MG, 4X/DAY(ONCE EVERY 6.0 HOURS)
     Route: 041
     Dates: start: 20251125, end: 20251202
  12. MEROPENEM [Concomitant]
     Active Substance: MEROPENEM
     Indication: Perirectal abscess
     Dosage: 1000.0 MG, 3X/DAY(ONCE EVERY 8.0 HOURS)
     Route: 041
     Dates: start: 20251126, end: 20251202
  13. CRESEMBA [Concomitant]
     Active Substance: ISAVUCONAZONIUM SULFATE
     Indication: Bronchopulmonary aspergillosis
     Dosage: 200.0 MG, 1X/DAY
     Route: 041
     Dates: start: 20251126, end: 20251130
  14. AVIBACTAM SODIUM\CEFTAZIDIME [Concomitant]
     Active Substance: AVIBACTAM SODIUM\CEFTAZIDIME
     Indication: Perirectal abscess
     Dosage: 2.5 G, 3X/DAY(ONCE EVERY 8.0 HOURS)
     Route: 041
     Dates: start: 20251127, end: 20251204
  15. COMBIVENT [Concomitant]
     Active Substance: ALBUTEROL SULFATE\IPRATROPIUM BROMIDE
     Indication: Acute respiratory failure
     Dosage: 1.0 DF, 3X/DAY(1.0 UDV, ONCE EVERY 8.0 HOURS)
     Route: 055
     Dates: start: 20251127, end: 20251209
  16. SIRUTA [Concomitant]
     Indication: Productive cough
     Dosage: 1 DF, 3X/DAY(1.0 UDV, ONCE EVERY 8.0 HOURS)
     Route: 055
     Dates: start: 20251127, end: 20251209
  17. MIDATIN [Concomitant]
     Indication: Acute respiratory failure
     Dosage: 180.0 MG, 2X/DAY(ONCE EVERY 12.0 HOURS)
     Route: 041
     Dates: start: 20251128, end: 20251203
  18. TYGACIL [Concomitant]
     Active Substance: TIGECYCLINE
     Indication: Perirectal abscess
     Dosage: 50.0 MG, 2X/DAY
     Route: 041
     Dates: start: 20251128, end: 20251129

REACTIONS (1)
  - Lactic acidosis [Recovering/Resolving]

NARRATIVE: CASE EVENT DATE: 20251129
